FAERS Safety Report 5463408-1 (Version None)
Quarter: 2007Q3

REPORT INFORMATION
  Report Type: 
  Country: None (occurrence: None)
  Receive Date: 20070920
  Receipt Date: 20070918
  Transmission Date: 20080115
  Serious: Yes (Hospitalization)
  Sender: FDA-Public Use
  Company Number: US-BRISTOL-MYERS SQUIBB COMPANY-13891783

PATIENT
  Age: 52 Year
  Sex: Male
  Weight: 98 kg

DRUGS (5)
  1. CETUXIMAB [Suspect]
     Indication: COLON CANCER
     Dosage: 400MG/M2 OVER 2HRS ON DAY1, 250MG/M2 OVER 1HR ON DAY8.
     Route: 042
     Dates: start: 20070808, end: 20070808
  2. OXALIPLATIN [Suspect]
     Indication: COLON CANCER
     Dosage: 85MG/M2 OVER 120MIN ON DAY 1
     Route: 042
     Dates: start: 20070808, end: 20070808
  3. LEUCOVORIN [Suspect]
     Indication: COLON CANCER
     Dosage: 400MG/M2 OVER 120MIN ON DAY 1
     Route: 042
     Dates: start: 20070808, end: 20070808
  4. FLUOROURACIL [Suspect]
     Indication: COLON CANCER
     Dosage: 400MG/M2 ON DAY1 FOLLOWED BY 2400MG/M2 CIV OVER 46-48HRS
     Route: 042
     Dates: start: 20070808, end: 20070808
  5. SAW PALMETTO [Concomitant]

REACTIONS (1)
  - ANGINA PECTORIS [None]
